FAERS Safety Report 20844112 (Version 1)
Quarter: 2022Q2

REPORT INFORMATION
  Report Type: Spontaneous
  Country: FR (occurrence: FR)
  Receive Date: 20220518
  Receipt Date: 20220518
  Transmission Date: 20220721
  Serious: Yes (Hospitalization)
  Sender: FDA-Public Use
  Company Number: FR-NOVARTISPH-NVSC2022FR109218

PATIENT
  Age: 57 Year
  Sex: Male
  Weight: 80 kg

DRUGS (11)
  1. CYCLOSPORINE [Suspect]
     Active Substance: CYCLOSPORINE
     Indication: Bone marrow failure
     Dosage: 6 MG/KG, QD (6 MG/KG, DAILY (IN TWO DOSES SINCE D6 ))
     Route: 065
  2. ATGAM [Suspect]
     Active Substance: EQUINE THYMOCYTE IMMUNE GLOBULIN
     Indication: Bone marrow failure
     Dosage: 40 MG/KG, QD (DAILY)
     Route: 065
     Dates: start: 20220224, end: 20220225
  3. METFORMIN [Concomitant]
     Active Substance: METFORMIN HYDROCHLORIDE
     Indication: Diabetes mellitus
     Dosage: 1400 MG, QD (700 MG, 2X/DAY)
     Route: 048
     Dates: start: 20200101
  4. SOLU-MEDROL [Concomitant]
     Active Substance: METHYLPREDNISOLONE SODIUM SUCCINATE
     Indication: Premedication
     Dosage: 1 MG/KG (1 MG/KG(SPLITED DOSE))
     Route: 065
  5. POSACONAZOLE [Concomitant]
     Active Substance: POSACONAZOLE
     Indication: Prophylaxis
     Dosage: 300 MG, QD (100 MG, 3X/DAY)
     Route: 048
     Dates: start: 20220210, end: 20220219
  6. LOXEN [Concomitant]
     Indication: Hypertension
     Dosage: 40 MG, QD (20 MG, 2X/DAY)
     Route: 048
     Dates: start: 20220218
  7. RAMIPRIL [Concomitant]
     Active Substance: RAMIPRIL
     Indication: Hypertension
     Dosage: 5 MG, QD (5 MG, 1X/DAY)
     Route: 048
     Dates: start: 20200101
  8. POLARAMINE [Concomitant]
     Active Substance: DEXCHLORPHENIRAMINE MALEATE
     Indication: Premedication
     Dosage: UNK
     Route: 065
  9. DAFALGAN [Concomitant]
     Active Substance: ACETAMINOPHEN
     Indication: Product used for unknown indication
     Dosage: UNK
     Route: 065
  10. CHOLECALCIFEROL [Concomitant]
     Active Substance: CHOLECALCIFEROL
     Indication: Vitamin D deficiency
     Dosage: 80000 IU, QW (WEEKLY)
     Route: 065
     Dates: start: 20220209, end: 20220311
  11. PIPERACILLIN SODIUM\TAZOBACTAM SODIUM [Concomitant]
     Active Substance: PIPERACILLIN SODIUM\TAZOBACTAM SODIUM
     Indication: Inflammation
     Dosage: 3 DOSAGE FORM, QD (1 DF, 3X/DAY (1 VIAL OF))
     Route: 042
     Dates: start: 20220221, end: 20220223

REACTIONS (2)
  - Hepatic cytolysis [Recovered/Resolved]
  - Chills [Recovered/Resolved]

NARRATIVE: CASE EVENT DATE: 20220224
